FAERS Safety Report 8344036-7 (Version None)
Quarter: 2012Q2

REPORT INFORMATION
  Report Type: 
  Country: None (occurrence: None)
  Receive Date: 20120508
  Receipt Date: 20120430
  Transmission Date: 20120825
  Serious: Yes (Other)
  Sender: FDA-Public Use
  Company Number: DE-AMGEN-DEUSP2012022821

PATIENT
  Age: 57 Year
  Sex: Male
  Weight: 120 kg

DRUGS (5)
  1. CINACALCET HYDROCHLORIDE [Suspect]
     Indication: HYPERPARATHYROIDISM SECONDARY
     Dosage: 60 MG, UNK
     Dates: start: 20120210, end: 20120315
  2. FUROSEMID                          /00032601/ [Concomitant]
     Dosage: 125 MG, UNK
     Route: 048
  3. MOBLOC [Concomitant]
     Route: 048
  4. DOXAZOSIN MESYLATE [Concomitant]
     Dosage: 2 MG, UNK
     Route: 048
  5. ARANESP [Concomitant]
     Dosage: 30 MUG, QWK
     Route: 058
     Dates: start: 20120316

REACTIONS (7)
  - BLISTER [None]
  - DERMATITIS ALLERGIC [None]
  - SKIN EXFOLIATION [None]
  - PRURITUS [None]
  - BLOOD CREATINE INCREASED [None]
  - ERYTHEMA [None]
  - DIARRHOEA [None]
